FAERS Safety Report 21436938 (Version 1)
Quarter: 2022Q4

REPORT INFORMATION
  Report Type: Spontaneous
  Country: US (occurrence: US)
  Receive Date: 20221010
  Receipt Date: 20221010
  Transmission Date: 20230112
  Serious: Yes (Other)
  Sender: FDA-Public Use
  Company Number: US-PFIZER INC-202201210165

PATIENT
  Age: 67 Year
  Sex: Female

DRUGS (1)
  1. INLYTA [Suspect]
     Active Substance: AXITINIB
     Dosage: 3TABS EVERY 12 HOURS
     Route: 048
     Dates: start: 20220921

REACTIONS (5)
  - Stomatitis [Recovering/Resolving]
  - Feeding disorder [Unknown]
  - Blood pressure increased [Unknown]
  - Heart rate increased [Unknown]
  - Thyroid function test abnormal [Not Recovered/Not Resolved]
